FAERS Safety Report 24251621 (Version 1)
Quarter: 2024Q3

REPORT INFORMATION
  Report Type: Spontaneous
  Country: US (occurrence: US)
  Receive Date: 20240827
  Receipt Date: 20240827
  Transmission Date: 20241017
  Serious: No
  Sender: PRINSTON PHARMACEUTICAL
  Company Number: US-PRINSTON PHARMACEUTICAL INC.-2024PRN00119

PATIENT
  Age: 67 Year
  Sex: Female
  Weight: 99.79 kg

DRUGS (8)
  1. ROPINIROLE HYDROCHLORIDE [Suspect]
     Active Substance: ROPINIROLE HYDROCHLORIDE
     Indication: Restless legs syndrome
     Dosage: 0.5 MG
     Route: 048
     Dates: start: 202311, end: 202401
  2. ROPINIROLE HYDROCHLORIDE [Suspect]
     Active Substance: ROPINIROLE HYDROCHLORIDE
     Indication: Restless legs syndrome
     Dosage: 1 MG, 1X/DAY AT BEDTIME
     Route: 048
     Dates: start: 202401
  3. METFORMIN [Suspect]
     Active Substance: METFORMIN HYDROCHLORIDE
  4. PRAVASTATIN [Suspect]
     Active Substance: PRAVASTATIN
  5. OXYCODONE [Suspect]
     Active Substance: OXYCODONE
  6. JARDIANCE [Suspect]
     Active Substance: EMPAGLIFLOZIN
  7. NOVOLOG [Suspect]
     Active Substance: INSULIN ASPART
  8. TOUJEO [Suspect]
     Active Substance: INSULIN GLARGINE

REACTIONS (12)
  - Petechiae [Not Recovered/Not Resolved]
  - Eye swelling [Not Recovered/Not Resolved]
  - Eye pruritus [Not Recovered/Not Resolved]
  - Nasal oedema [Not Recovered/Not Resolved]
  - Epistaxis [Not Recovered/Not Resolved]
  - Mouth injury [Not Recovered/Not Resolved]
  - Oral mucosal exfoliation [Not Recovered/Not Resolved]
  - Oral discomfort [Not Recovered/Not Resolved]
  - Genital discomfort [Not Recovered/Not Resolved]
  - Drug ineffective [Unknown]
  - Allergic reaction to excipient [Not Recovered/Not Resolved]
  - Contraindicated product administered [Not Recovered/Not Resolved]

NARRATIVE: CASE EVENT DATE: 20231101
